FAERS Safety Report 7194242-2 (Version None)
Quarter: 2010Q4

REPORT INFORMATION
  Report Type: 
  Country: None (occurrence: None)
  Receive Date: 20101223
  Receipt Date: 20101217
  Transmission Date: 20110411
  Serious: Yes (Death)
  Sender: FDA-Public Use
  Company Number: JP-ELI_LILLY_AND_COMPANY-JP201012004228

PATIENT
  Age: 60 Year
  Sex: Male

DRUGS (2)
  1. ALIMTA [Suspect]
     Indication: NON-SMALL CELL LUNG CANCER RECURRENT
     Dosage: 500 MG/M2, OTHER
     Route: 042
     Dates: start: 20101209
  2. CISPLATIN [Concomitant]
     Indication: NON-SMALL CELL LUNG CANCER RECURRENT
     Dosage: 75 MG/M2, OTHER
     Route: 042
     Dates: start: 20101209

REACTIONS (1)
  - CARDIO-RESPIRATORY ARREST [None]
